FAERS Safety Report 7371005-6 (Version None)
Quarter: 2011Q1

REPORT INFORMATION
  Report Type: 
  Country: None (occurrence: None)
  Receive Date: 20110321
  Receipt Date: 20110321
  Transmission Date: 20110831
  Serious: No
  Sender: FDA-Public Use
  Company Number: None

PATIENT
  Sex: Female
  Weight: 74.8435 kg

DRUGS (1)
  1. LEVAQUIN [Suspect]
     Indication: ACUTE SINUSITIS
     Dosage: 1 DAILY PO
     Route: 048
     Dates: start: 20110217, end: 20110222

REACTIONS (5)
  - PERONEAL NERVE PALSY [None]
  - PAIN [None]
  - GRIP STRENGTH DECREASED [None]
  - PARAESTHESIA [None]
  - DYSGRAPHIA [None]
